FAERS Safety Report 5844211-7 (Version None)
Quarter: 2008Q3

REPORT INFORMATION
  Report Type: 
  Country: None (occurrence: None)
  Receive Date: 20080813
  Receipt Date: 20080804
  Transmission Date: 20090109
  Serious: Yes (Hospitalization)
  Sender: FDA-Public Use
  Company Number: BE-PFIZER INC-2008056662

PATIENT
  Sex: Male

DRUGS (4)
  1. SUTENT [Suspect]
     Indication: RENAL CELL CARCINOMA
     Route: 048
     Dates: start: 20080117, end: 20080214
  2. BURINEX [Concomitant]
     Route: 048
  3. BARNIDIPINE [Concomitant]
     Dosage: DAILY DOSE:10MG
     Route: 048
     Dates: start: 20061009, end: 20080310
  4. DEPAKENE [Concomitant]
     Route: 048

REACTIONS (3)
  - DISEASE PROGRESSION [None]
  - TESTICULAR INFARCTION [None]
  - VENOUS THROMBOSIS [None]
